FAERS Safety Report 5085440-2 (Version None)
Quarter: 2006Q3

REPORT INFORMATION
  Report Type: 
  Country: None (occurrence: None)
  Receive Date: 20060815
  Receipt Date: 20060622
  Transmission Date: 20061208
  Serious: Yes (Death, Hospitalization)
  Sender: FDA-Public Use
  Company Number: WSDF_00557

PATIENT
  Age: 69 Year
  Sex: Male

DRUGS (8)
  1. WINRHO SDF [Suspect]
     Indication: IDIOPATHIC THROMBOCYTOPENIC PURPURA
     Dates: start: 20060619, end: 20060619
  2. WINRHO SDF [Suspect]
     Indication: IDIOPATHIC THROMBOCYTOPENIC PURPURA
  3. ALLOPURINOL [Concomitant]
  4. PREDNISONE TAB [Concomitant]
  5. PROTONIX [Concomitant]
  6. ATENOLOL [Concomitant]
  7. ENALAPRIL [Concomitant]
  8. HYDROCHLOROTHIAZIDE [Concomitant]

REACTIONS (13)
  - ANURIA [None]
  - CHILLS [None]
  - DISSEMINATED INTRAVASCULAR COAGULATION [None]
  - HAPTOGLOBIN DECREASED [None]
  - IMMUNE COMPLEX LEVEL INCREASED [None]
  - INTRAVASCULAR HAEMOLYSIS [None]
  - LYMPHOCYTOSIS [None]
  - MUSCLE DISORDER [None]
  - NORMOCHROMIC NORMOCYTIC ANAEMIA [None]
  - PULMONARY HAEMORRHAGE [None]
  - PYREXIA [None]
  - RENAL FAILURE [None]
  - URINARY BLADDER HAEMORRHAGE [None]
